FAERS Safety Report 9402963 (Version 2)
Quarter: 2013Q3

REPORT INFORMATION
  Report Type: Spontaneous
  Country: US (occurrence: US)
  Receive Date: 20130716
  Receipt Date: 20130913
  Transmission Date: 20140515
  Serious: Yes (Other)
  Sender: FDA-Public Use
  Company Number: US-JNJFOC-20130705428

PATIENT
  Age: 52 Year
  Sex: Female
  Weight: 156 kg

DRUGS (10)
  1. DURAGESIC [Suspect]
     Indication: BACK PAIN
     Route: 062
  2. DURAGESIC [Suspect]
     Indication: BACK PAIN
     Dosage: 100UG/HR+50UG/HR
     Route: 062
     Dates: start: 2003
  3. VENLAFAXINE [Concomitant]
     Indication: NERVOUSNESS
     Route: 048
     Dates: start: 2008
  4. VENLAFAXINE [Concomitant]
     Indication: ANXIETY
     Route: 048
     Dates: start: 2008
  5. HYDROCHLOROTHIAZIDE [Concomitant]
     Indication: BLOOD PRESSURE
     Route: 048
     Dates: start: 2011
  6. LYRICA [Concomitant]
     Indication: OEDEMA PERIPHERAL
     Route: 048
     Dates: start: 2007
  7. OXYCODONE [Concomitant]
     Indication: BREAKTHROUGH PAIN
     Route: 048
     Dates: start: 2003
  8. ABILIFY [Concomitant]
     Indication: ANXIETY
     Route: 048
     Dates: start: 2008
  9. CYCLOBENZAPRINE [Concomitant]
     Indication: MUSCLE SPASMS
     Route: 048
     Dates: start: 2003
  10. CLONAZEPAM [Concomitant]
     Indication: INSOMNIA
     Route: 048
     Dates: start: 2008

REACTIONS (6)
  - Blindness [Unknown]
  - Deafness [Unknown]
  - Drug dose omission [Unknown]
  - Discomfort [Unknown]
  - Product packaging quantity issue [Unknown]
  - Inappropriate schedule of drug administration [Unknown]
